FAERS Safety Report 4983089-0 (Version None)
Quarter: 2006Q2

REPORT INFORMATION
  Report Type: 
  Country: None (occurrence: None)
  Receive Date: 20060420
  Receipt Date: 20060412
  Transmission Date: 20061013
  Serious: Yes (Disabling, Other)
  Sender: FDA-Public Use
  Company Number: 2006030220

PATIENT
  Age: 46 Year
  Sex: Female
  Weight: 75.7507 kg

DRUGS (12)
  1. ZYRTEC [Suspect]
     Indication: HYPERSENSITIVITY
  2. ZYRTEC-D 12 HOUR [Suspect]
     Indication: HYPERSENSITIVITY
  3. CELEBREX [Concomitant]
  4. VAGIFEM [Concomitant]
  5. VYTORIN [Concomitant]
  6. FOSAMAX [Concomitant]
  7. ESTRADERM [Concomitant]
  8. LASIX [Concomitant]
  9. KLONOPIN [Concomitant]
  10. LEXERIL (CYCLOBENZAPRINE HYDROCHLORIDE) [Concomitant]
  11. ATIVAN [Concomitant]
  12. HYDROCODONE BITARTRATE [Concomitant]

REACTIONS (10)
  - CATHETER RELATED COMPLICATION [None]
  - CHRONIC SINUSITIS [None]
  - DRUG INEFFECTIVE [None]
  - EPSTEIN-BARR VIRUS INFECTION [None]
  - FATIGUE [None]
  - FIBROMYALGIA [None]
  - MIDDLE EAR EFFUSION [None]
  - OSTEOARTHRITIS [None]
  - OSTEOPENIA [None]
  - SINUS HEADACHE [None]
